FAERS Safety Report 4614507-5 (Version None)
Quarter: 2005Q2

REPORT INFORMATION
  Report Type: 
  Country: None (occurrence: None)
  Receive Date: 20050307
  Receipt Date: 20050112
  Transmission Date: 20051028
  Serious: No
  Sender: FDA-Public Use
  Company Number: USA041287184

PATIENT
  Age: 54 Year
  Sex: Female
  Weight: 81 kg

DRUGS (10)
  1. ALIMTA [Suspect]
     Indication: PLEURAL MESOTHELIOMA MALIGNANT
     Dosage: 950 MG
     Dates: start: 20041222
  2. CISPLATIN [Concomitant]
  3. FOLIC ACID [Concomitant]
  4. VITAMIN B-12 [Concomitant]
  5. DEXAMETHASONE [Concomitant]
  6. QUARZAN (CLIDINIUM BROMIDE) [Concomitant]
  7. ALBUTEROL [Concomitant]
  8. VICODIN [Concomitant]
  9. OXYCONTIN [Concomitant]
  10. VITAMIN B6 [Concomitant]

REACTIONS (1)
  - DERMATITIS ACNEIFORM [None]
